FAERS Safety Report 17405284 (Version 3)
Quarter: 2020Q1

REPORT INFORMATION
  Report Type: Spontaneous
  Country: DE (occurrence: DE)
  Receive Date: 20200212
  Receipt Date: 20200219
  Transmission Date: 20200409
  Serious: Yes (Hospitalization, Disabling)
  Sender: FDA-Public Use
  Company Number: DE-BAUSCH-BL-2020-004329

PATIENT
  Age: 31 Year
  Sex: Male
  Weight: 75 kg

DRUGS (1)
  1. KYNTHEUM [Suspect]
     Active Substance: BRODALUMAB
     Indication: PSORIASIS
     Dosage: BIWEEKLY
     Route: 058
     Dates: start: 201906, end: 20200118

REACTIONS (2)
  - Urinary tract infection [Unknown]
  - Oligoarthritis [Not Recovered/Not Resolved]

NARRATIVE: CASE EVENT DATE: 202001
